FAERS Safety Report 20699886 (Version 1)
Quarter: 2022Q2

REPORT INFORMATION
  Report Type: Spontaneous
  Country: US (occurrence: None)
  Receive Date: 20220409
  Receipt Date: 20220409
  Transmission Date: 20220721
  Serious: Yes (Hospitalization)
  Sender: FDA-Public Use
  Company Number: None

PATIENT
  Sex: Male

DRUGS (7)
  1. VELCADE [Suspect]
     Active Substance: BORTEZOMIB
     Indication: Plasma cell myeloma
     Dosage: OTHER FREQUENCY : EVERY WEEK;?
     Route: 058
  2. ZOLEDRONIC ACID [Suspect]
     Active Substance: ZOLEDRONIC ACID
     Dosage: OTHER FREQUENCY : EVERY OTHER MONTH;?
     Route: 042
  3. warfarin 5 mg tab [Concomitant]
  4. diltiazem er cap [Concomitant]
  5. METFORMIN [Concomitant]
     Active Substance: METFORMIN HYDROCHLORIDE
  6. omeprazole 20 mg cap [Concomitant]
  7. dexamethasone 2 mg tab [Concomitant]

REACTIONS (4)
  - Haemorrhage [None]
  - Platelet transfusion [None]
  - Transfusion [None]
  - Asthenia [None]
